FAERS Safety Report 15008318 (Version 2)
Quarter: 2018Q2

REPORT INFORMATION
  Report Type: Report from Study
  Country: CZ (occurrence: CZ)
  Receive Date: 20180613
  Receipt Date: 20180619
  Transmission Date: 20180711
  Serious: Yes (Hospitalization)
  Sender: FDA-Public Use
  Company Number: CZ-PFIZER INC-2018236247

PATIENT
  Age: 52 Year
  Sex: Male
  Weight: 119 kg

DRUGS (11)
  1. CALCIUM FOLINATE [Suspect]
     Active Substance: LEUCOVORIN CALCIUM
     Dosage: 800 MG, CYCLIC
     Route: 041
     Dates: start: 20150629, end: 20150629
  2. ALPRAZOLAM. [Concomitant]
     Active Substance: ALPRAZOLAM
     Dosage: UNK
     Route: 065
  3. FLUOROURACIL. [Suspect]
     Active Substance: FLUOROURACIL
     Dosage: 600 MG, CYCLIC
     Route: 040
     Dates: start: 20150525, end: 20150525
  4. AFLIBERCEPT [Suspect]
     Active Substance: AFLIBERCEPT
     Indication: COLORECTAL CANCER METASTATIC
     Dosage: 476 MG/KG, CYCLIC
     Route: 041
     Dates: start: 20150525, end: 20150525
  5. SERTRALINE [Concomitant]
     Active Substance: SERTRALINE HYDROCHLORIDE
     Dosage: UNK
  6. CALCIUM FOLINATE [Suspect]
     Active Substance: LEUCOVORIN CALCIUM
     Indication: COLORECTAL CANCER METASTATIC
     Dosage: 800 MG, CYCLIC
     Route: 041
     Dates: start: 20150525, end: 20150525
  7. FLUOROURACIL. [Suspect]
     Active Substance: FLUOROURACIL
     Indication: COLORECTAL CANCER METASTATIC
     Dosage: 600 MG, CYCLIC
     Route: 040
     Dates: start: 20150629, end: 20150629
  8. FLUOROURACIL. [Suspect]
     Active Substance: FLUOROURACIL
     Dosage: 3600 MG, CYCLIC
     Route: 041
     Dates: start: 20150525
  9. IRINOTECAN HCL [Suspect]
     Active Substance: IRINOTECAN HYDROCHLORIDE
     Indication: COLORECTAL CANCER METASTATIC
     Dosage: 270 MG, CYCLIC
     Route: 041
     Dates: start: 20150525, end: 20150525
  10. IRINOTECAN HCL [Suspect]
     Active Substance: IRINOTECAN HYDROCHLORIDE
     Dosage: 270 MG, CYCLIC
     Route: 041
     Dates: start: 20150629, end: 20150629
  11. FLUOROURACIL. [Suspect]
     Active Substance: FLUOROURACIL
     Dosage: 3600 MG, CYCLIC
     Route: 041
     Dates: start: 20150629

REACTIONS (2)
  - Anaemia [Recovering/Resolving]
  - Urinary tract infection [Recovered/Resolved]

NARRATIVE: CASE EVENT DATE: 20150629
